FAERS Safety Report 8120242-1 (Version None)
Quarter: 2012Q1

REPORT INFORMATION
  Report Type: 
  Country: None (occurrence: None)
  Receive Date: 20120203
  Receipt Date: 20120120
  Transmission Date: 20120608
  Serious: Yes (Other)
  Sender: FDA-Public Use
  Company Number: 2012P1002843

PATIENT
  Age: 50 Year
  Sex: Female

DRUGS (7)
  1. CRESTOR [Concomitant]
  2. FENTANYL [Suspect]
     Indication: BACK PAIN
     Dosage: 1 PATCH; Q72H; TDER
     Route: 062
     Dates: start: 20110601
  3. ROXICODONE [Concomitant]
  4. METFORMIN HCL [Concomitant]
  5. OMEPRAZOLE [Concomitant]
  6. NEURONTIN [Concomitant]
  7. VALIUM [Concomitant]

REACTIONS (4)
  - DYSPNOEA [None]
  - SOMNOLENCE [None]
  - SOMNAMBULISM [None]
  - DRUG EFFECT INCREASED [None]
